FAERS Safety Report 20404601 (Version 1)
Quarter: 2022Q1

REPORT INFORMATION
  Report Type: Other
  Country: AU (occurrence: AU)
  Receive Date: 20220131
  Receipt Date: 20220131
  Transmission Date: 20220423
  Serious: Yes (Other)
  Sender: FDA-Public Use
  Company Number: AU-ALEMBIC PHARMACUETICALS LIMITED-2021SCAL000657

PATIENT

DRUGS (8)
  1. VENLAFAXINE HYDROCHLORIDE [Suspect]
     Active Substance: VENLAFAXINE HYDROCHLORIDE
     Indication: Product used for unknown indication
     Dosage: UNKNOWN
     Route: 065
  2. PREDNISOLONE [Suspect]
     Active Substance: PREDNISOLONE
     Indication: Product used for unknown indication
  3. DABRAFENIB MESYLATE [Suspect]
     Active Substance: DABRAFENIB MESYLATE
     Indication: Product used for unknown indication
     Dosage: UNKNOWN
     Route: 065
  4. TECFIDERA [Suspect]
     Active Substance: DIMETHYL FUMARATE
     Indication: Product used for unknown indication
     Dosage: UNKNOWN
     Route: 065
  5. ACETAMINOPHEN [Suspect]
     Active Substance: ACETAMINOPHEN
     Indication: Product used for unknown indication
     Dosage: UNKNOWN
     Route: 065
  6. TRAMETINIB [Suspect]
     Active Substance: TRAMETINIB
     Indication: Product used for unknown indication
     Dosage: UNKNOWN
     Route: 065
  7. ASPIRIN [Concomitant]
     Active Substance: ASPIRIN
     Indication: Product used for unknown indication
     Dosage: UNKNOWN
     Route: 065
  8. PROTHIADEN [Concomitant]
     Active Substance: DOTHIEPIN HYDROCHLORIDE
     Indication: Product used for unknown indication

REACTIONS (40)
  - Loss of control of legs [None]
  - Malignant melanoma [None]
  - Multiple sclerosis [None]
  - Multiple sclerosis relapse [None]
  - Suicide attempt [None]
  - Abdominal pain [None]
  - Anxiety [None]
  - Cognitive disorder [None]
  - Contusion [None]
  - Crying [None]
  - Depression [None]
  - Dysstasia [None]
  - Eating disorder [None]
  - Emotional disorder [None]
  - Emotional distress [None]
  - Fall [None]
  - Flushing [None]
  - Gait disturbance [None]
  - Gait inability [None]
  - Headache [None]
  - Insomnia [None]
  - Intentional overdose [None]
  - Localised oedema [None]
  - Melanocytic naevus [None]
  - Mental disorder [None]
  - Muscular weakness [None]
  - Nausea [None]
  - Oedema peripheral [None]
  - Pain in extremity [None]
  - Peripheral swelling [None]
  - Photophobia [None]
  - Poor quality sleep [None]
  - Post procedural discomfort [None]
  - Pruritus [None]
  - Sensory disturbance [None]
  - Speech disorder [None]
  - Stress [None]
  - Urinary incontinence [None]
  - Vomiting [None]
  - Weight decreased [None]
